FAERS Safety Report 15704089 (Version 2)
Quarter: 2018Q4

REPORT INFORMATION
  Report Type: Spontaneous
  Country: US (occurrence: US)
  Receive Date: 20181210
  Receipt Date: 20181212
  Transmission Date: 20190205
  Serious: Yes (Other)
  Sender: FDA-Public Use
  Company Number: US-PFIZER INC-2018501601

PATIENT
  Age: 63 Year
  Sex: Female
  Weight: 63.95 kg

DRUGS (3)
  1. INSULIN [Concomitant]
     Active Substance: INSULIN NOS
     Dosage: UNK
  2. CYTOMEL [Suspect]
     Active Substance: LIOTHYRONINE SODIUM
     Indication: THYROID DISORDER
     Dosage: UNK, 2X/DAY 25 UG (ONE 25 MCG TABLET IN THE MORNING AND 10 UG (TWO 5 MCG TABLETS) AT NIGHT/
  3. LEVOTHYROXINE SODIUM. [Suspect]
     Active Substance: LEVOTHYROXINE SODIUM
     Indication: THYROID DISORDER
     Dosage: 150 UG, DAILY (150MCG EVERY DAY BY MOUTH)
     Route: 048

REACTIONS (1)
  - Type 1 diabetes mellitus [Unknown]
